FAERS Safety Report 8396114-4 (Version None)
Quarter: 2012Q2

REPORT INFORMATION
  Report Type: 
  Country: None (occurrence: None)
  Receive Date: 20120530
  Receipt Date: 20120524
  Transmission Date: 20120825
  Serious: Yes (Hospitalization)
  Sender: FDA-Public Use
  Company Number: US-GLAXOSMITHKLINE-A0752854A

PATIENT
  Age: 65 Year
  Sex: Female

DRUGS (21)
  1. WARFARIN SODIUM [Concomitant]
  2. PROAIR HFA [Concomitant]
  3. OXYGEN [Concomitant]
     Dosage: 2PCT AT NIGHT
  4. NEXIUM [Concomitant]
  5. FISH OIL [Concomitant]
  6. POTASSIUM CHLORIDE [Concomitant]
  7. COUMADIN [Concomitant]
  8. ANTIFUNGAL [Concomitant]
     Route: 048
  9. ALBUTEROL [Concomitant]
  10. SPIRIVA [Concomitant]
  11. HYDROCHLOROTHIAZIDE [Concomitant]
  12. AMBIEN [Concomitant]
  13. ZOLPIDEM [Concomitant]
  14. TYLENOL [Concomitant]
  15. EXFORGE [Concomitant]
  16. UNSPECIFIED MEDICATION [Concomitant]
  17. FLUTICASONE PROPIONATE/SALMETEROL [Suspect]
     Indication: CHRONIC OBSTRUCTIVE PULMONARY DISEASE
     Route: 055
     Dates: start: 20080910, end: 20081007
  18. ADVAIR DISKUS 100/50 [Suspect]
     Indication: CHRONIC OBSTRUCTIVE PULMONARY DISEASE
     Dosage: 1PUFF TWICE PER DAY
     Route: 055
     Dates: start: 20070101
  19. DIAVAN [Concomitant]
  20. VITAMIN D [Concomitant]
  21. NAPROXEN (ALEVE) [Concomitant]

REACTIONS (20)
  - HYPOAESTHESIA [None]
  - CHEST DISCOMFORT [None]
  - LOCAL SWELLING [None]
  - CHOKING SENSATION [None]
  - ORAL CANDIDIASIS [None]
  - SINUS CONGESTION [None]
  - FLUSHING [None]
  - AMNESIA [None]
  - CONJUNCTIVITIS INFECTIVE [None]
  - PULMONARY EMBOLISM [None]
  - PARAESTHESIA [None]
  - MEMORY IMPAIRMENT [None]
  - DRY EYE [None]
  - EYE INFECTION [None]
  - CHEST PAIN [None]
  - ORAL DISORDER [None]
  - DYSPNOEA [None]
  - ORAL DISCOMFORT [None]
  - INSOMNIA [None]
  - GAIT DISTURBANCE [None]
